FAERS Safety Report 9736192 (Version 2)
Quarter: 2013Q4

REPORT INFORMATION
  Report Type: Spontaneous
  Country: US (occurrence: US)
  Receive Date: 20131206
  Receipt Date: 20131220
  Transmission Date: 20140711
  Serious: Yes (Death)
  Sender: FDA-Public Use
  Company Number: US-INCYTE CORPORATION-2013IN002902

PATIENT
  Age: 71 Year
  Sex: Male

DRUGS (9)
  1. JAKAFI [Suspect]
     Dosage: 20 MG, BID
     Route: 048
     Dates: start: 20130607
  2. LISINOPRIL [Concomitant]
  3. GEMFIBROZIL [Concomitant]
  4. DIGOXIN [Concomitant]
  5. ASPIRIN [Concomitant]
  6. IRON [Concomitant]
  7. METOPROLOL [Concomitant]
  8. SYNTHROID [Concomitant]
  9. FUROSEMIDE [Concomitant]

REACTIONS (3)
  - Death [Fatal]
  - Haemoglobin decreased [Unknown]
  - Haematocrit decreased [Unknown]
